FAERS Safety Report 20182818 (Version 1)
Quarter: 2021Q4

REPORT INFORMATION
  Report Type: Spontaneous
  Country: GB (occurrence: GB)
  Receive Date: 20211214
  Receipt Date: 20211214
  Transmission Date: 20220303
  Serious: Yes (Hospitalization)
  Sender: FDA-Public Use
  Company Number: None

PATIENT
  Age: 73 Year
  Sex: Female

DRUGS (6)
  1. OMEPRAZOLE [Suspect]
     Active Substance: OMEPRAZOLE
     Indication: Product used for unknown indication
     Dosage: UNK
     Route: 065
  2. AMITRIPTYLINE [Concomitant]
     Active Substance: AMITRIPTYLINE
     Indication: Product used for unknown indication
     Dosage: UNK (ONE TO BE TAKEN EACH NIGHT OR AS NEEDED)
     Route: 065
     Dates: start: 20210721
  3. AMLODIPINE [Concomitant]
     Active Substance: AMLODIPINE BESYLATE
     Indication: Product used for unknown indication
     Dosage: UNK (ONE TO BE TAKEN EACH DAY)
     Route: 065
     Dates: start: 20210721
  4. DOXAZOSIN [Concomitant]
     Active Substance: DOXAZOSIN MESYLATE
     Indication: Product used for unknown indication
     Dosage: UNK ( ONE TO BE TAKEN IN THE MORNING AND ONE TO BE TAKEN AT TEA TIME 56 TABLET INCREASED)
     Route: 065
     Dates: start: 20210721
  5. LACTULOSE [Concomitant]
     Active Substance: LACTULOSE
     Indication: Constipation
     Dosage: UNK UNK, PRN (3.1 TO 3.7G/5ML THREE 5ML SPOONFULS TO BE TAKEN TWICE A DAY)
     Route: 065
     Dates: start: 20210721
  6. LORATADINE [Concomitant]
     Active Substance: LORATADINE
     Indication: Product used for unknown indication
     Dosage: UNK (ONE TO BE TAKEN EACH DAY 30 TABLET)
     Route: 065
     Dates: start: 20210611

REACTIONS (1)
  - Tubulointerstitial nephritis [Unknown]
